FAERS Safety Report 18236207 (Version 1)
Quarter: 2020Q3

REPORT INFORMATION
  Report Type: Spontaneous
  Country: US (occurrence: US)
  Receive Date: 20200906
  Receipt Date: 20200906
  Transmission Date: 20201103
  Serious: No
  Sender: FDA-Public Use
  Company Number: US-AMGEN-USASP2020142843

PATIENT
  Age: 60 Year
  Sex: Female

DRUGS (1)
  1. XGEVA [Suspect]
     Active Substance: DENOSUMAB
     Indication: NEOPLASM
     Dosage: UNK
     Route: 065
     Dates: start: 2018

REACTIONS (2)
  - Bone pain [Unknown]
  - Loose tooth [Unknown]

NARRATIVE: CASE EVENT DATE: 2019
